FAERS Safety Report 26087701 (Version 1)
Quarter: 2025Q4

REPORT INFORMATION
  Report Type: Spontaneous
  Country: US (occurrence: US)
  Receive Date: 20251125
  Receipt Date: 20251125
  Transmission Date: 20260117
  Serious: No
  Sender: GRIFOLS
  Company Number: US-IGSA-BIG0039619

PATIENT
  Age: 65 Year
  Sex: Female

DRUGS (3)
  1. GAMUNEX-C [Suspect]
     Active Substance: HUMAN IMMUNOGLOBULIN G
     Indication: Polyneuropathy
     Dosage: 100 GRAM, Q.2WK.
     Route: 042
  2. GAMUNEX-C [Suspect]
     Active Substance: HUMAN IMMUNOGLOBULIN G
     Dosage: 100 GRAM, Q.2WK.
     Route: 042
  3. SOLU-MEDROL [Concomitant]
     Active Substance: METHYLPREDNISOLONE SODIUM SUCCINATE
     Indication: Premedication
     Dosage: 20 MILLIGRAM

REACTIONS (6)
  - Pain [Unknown]
  - Fatigue [Unknown]
  - Somnolence [Unknown]
  - Erythema [Unknown]
  - Rash vesicular [Unknown]
  - Stasis dermatitis [Unknown]

NARRATIVE: CASE EVENT DATE: 20251109
